FAERS Safety Report 4900244-6 (Version None)
Quarter: 2006Q1

REPORT INFORMATION
  Report Type: 
  Country: None (occurrence: None)
  Receive Date: 20060203
  Receipt Date: 20060123
  Transmission Date: 20060701
  Serious: Yes (Hospitalization)
  Sender: FDA-Public Use
  Company Number: PHEH2006US01202

PATIENT
  Age: 5 Year
  Sex: Male

DRUGS (2)
  1. ELIDEL [Suspect]
     Indication: ECZEMA
     Dosage: 1-2 TIMES/DAY, PRN
     Route: 061
     Dates: start: 20040901, end: 20050301
  2. SINGULAIR [Concomitant]
     Indication: SEASONAL ALLERGY
     Dosage: UNK, PRN

REACTIONS (1)
  - PRECURSOR B-LYMPHOBLASTIC LYMPHOMA [None]
